FAERS Safety Report 9705852 (Version 2)
Quarter: 2013Q4

REPORT INFORMATION
  Report Type: Spontaneous
  Country: US (occurrence: US)
  Receive Date: 20131122
  Receipt Date: 20131227
  Transmission Date: 20140711
  Serious: Yes (Other)
  Sender: FDA-Public Use
  Company Number: US-B.I. PHARMACEUTICALS,INC./RIDGEFIELD-2013-BI-38200BP

PATIENT
  Sex: Male

DRUGS (9)
  1. PRADAXA [Suspect]
     Indication: ATRIAL FIBRILLATION
     Dosage: 300 MG
     Route: 048
     Dates: start: 2011, end: 2011
  2. PRADAXA [Suspect]
     Dosage: 150 MG
     Route: 048
     Dates: start: 2011
  3. ATENOLOL [Concomitant]
     Indication: HYPERTENSION
     Dosage: 100 MG
     Route: 048
  4. PRINIVIL [Concomitant]
     Indication: HYPERTENSION
     Dosage: 20 MG
     Route: 048
  5. ISOSORBIDE [Concomitant]
     Indication: CHEST PAIN
     Dosage: 1 ANZ
     Route: 048
  6. AMIODARONE [Concomitant]
     Indication: ATRIAL FIBRILLATION
     Dosage: 200 MG
     Route: 048
  7. NIACIN [Concomitant]
  8. GLUCOSAMINE/CHONDROITIN [Concomitant]
  9. VITAMIN D [Concomitant]

REACTIONS (3)
  - Renal failure [Unknown]
  - Epistaxis [Recovered/Resolved]
  - Renal impairment [Not Recovered/Not Resolved]
